FAERS Safety Report 16586347 (Version 2)
Quarter: 2019Q3

REPORT INFORMATION
  Report Type: Spontaneous
  Country: IT (occurrence: IT)
  Receive Date: 20190717
  Receipt Date: 20190801
  Transmission Date: 20191004
  Serious: Yes (Life-Threatening)
  Sender: FDA-Public Use
  Company Number: IT-PFIZER INC-2019300433

PATIENT
  Age: 73 Year
  Sex: Female
  Weight: 53 kg

DRUGS (1)
  1. PACLITAXEL. [Suspect]
     Active Substance: PACLITAXEL
     Indication: ENDOMETRIAL CANCER
     Dosage: 250 MG, CYCLIC
     Route: 042
     Dates: start: 20190621, end: 20190621

REACTIONS (7)
  - Infusion related reaction [Recovered/Resolved]
  - Feeling hot [Unknown]
  - Chest discomfort [Unknown]
  - Erythema [Unknown]
  - Dyspnoea [Unknown]
  - Hypotension [Unknown]
  - Abdominal pain upper [Unknown]

NARRATIVE: CASE EVENT DATE: 20190621
